FAERS Safety Report 25082838 (Version 1)
Quarter: 2025Q1

REPORT INFORMATION
  Report Type: Spontaneous
  Country: DE (occurrence: DE)
  Receive Date: 20250317
  Receipt Date: 20250317
  Transmission Date: 20250408
  Serious: Yes (Other)
  Sender: AMGEN
  Company Number: DE-PEI-202500001809

PATIENT
  Age: 55 Year
  Sex: Female
  Weight: 42 kg

DRUGS (1)
  1. REPATHA [Suspect]
     Active Substance: EVOLOCUMAB
     Indication: Hypercholesterolaemia
     Route: 065
     Dates: start: 202301

REACTIONS (3)
  - Hepatomegaly [Recovered/Resolved]
  - Transaminases increased [Recovered/Resolved]
  - Abdominal pain upper [Recovered/Resolved]

NARRATIVE: CASE EVENT DATE: 20240909
